FAERS Safety Report 6652987-4 (Version None)
Quarter: 2010Q1

REPORT INFORMATION
  Report Type: 
  Country: None (occurrence: None)
  Receive Date: 20100326
  Receipt Date: 20100315
  Transmission Date: 20100710
  Serious: Yes (Hospitalization)
  Sender: FDA-Public Use
  Company Number: PHHY2010DE15546

PATIENT
  Sex: Male

DRUGS (2)
  1. LEPONEX [Suspect]
     Dosage: UNK
  2. CARBIDOPA AND LEVODOPA [Concomitant]

REACTIONS (2)
  - DRUG ADMINISTRATION ERROR [None]
  - SUICIDE ATTEMPT [None]
